FAERS Safety Report 14803196 (Version 3)
Quarter: 2018Q3

REPORT INFORMATION
  Report Type: Spontaneous
  Country: JP (occurrence: JP)
  Receive Date: 20180425
  Receipt Date: 20180726
  Transmission Date: 20181010
  Serious: Yes (Life-Threatening, Hospitalization)
  Sender: FDA-Public Use
  Company Number: JP-ABBVIE-18K-087-2333114-00

PATIENT
  Age: 66 Year
  Sex: Female
  Weight: 40 kg

DRUGS (8)
  1. METHOTREXATE. [Suspect]
     Active Substance: METHOTREXATE
     Route: 048
     Dates: start: 201601, end: 20180314
  2. TACROLIMUS HYDRATE [Suspect]
     Active Substance: TACROLIMUS
     Indication: RHEUMATOID ARTHRITIS
     Route: 048
     Dates: start: 201312
  3. METHOTREXATE. [Suspect]
     Active Substance: METHOTREXATE
     Route: 048
     Dates: start: 201104
  4. METHOTREXATE. [Suspect]
     Active Substance: METHOTREXATE
     Indication: RHEUMATOID ARTHRITIS
     Route: 048
     Dates: start: 1997
  5. TACROLIMUS HYDRATE [Suspect]
     Active Substance: TACROLIMUS
     Indication: ARTHRITIS
     Route: 048
     Dates: start: 201711, end: 20180314
  6. HUMIRA [Suspect]
     Active Substance: ADALIMUMAB
     Route: 058
     Dates: start: 201405, end: 20180314
  7. HUMIRA [Suspect]
     Active Substance: ADALIMUMAB
     Indication: RHEUMATOID ARTHRITIS
     Route: 058
     Dates: start: 201006, end: 201403
  8. METHOTREXATE. [Suspect]
     Active Substance: METHOTREXATE
     Indication: ARTHRITIS
     Route: 048
     Dates: start: 200001

REACTIONS (14)
  - Acute pulmonary oedema [Recovered/Resolved]
  - Stress cardiomyopathy [Recovered/Resolved]
  - Pneumonia [Unknown]
  - Necrosis [Unknown]
  - Acute respiratory failure [Recovering/Resolving]
  - Lung disorder [Unknown]
  - Ventricular hypokinesia [Unknown]
  - Fraction of inspired oxygen [Recovering/Resolving]
  - Hypokinesia [Unknown]
  - Cardiac failure acute [Recovering/Resolving]
  - Blood alkaline phosphatase increased [Unknown]
  - Disseminated tuberculosis [Recovering/Resolving]
  - Electrocardiogram ST segment elevation [Unknown]
  - Immune reconstitution inflammatory syndrome [Recovering/Resolving]

NARRATIVE: CASE EVENT DATE: 2018
